FAERS Safety Report 23513008 (Version 2)
Quarter: 2024Q1

REPORT INFORMATION
  Report Type: Spontaneous
  Country: CN (occurrence: CN)
  Receive Date: 20240212
  Receipt Date: 20240213
  Transmission Date: 20240409
  Serious: No
  Sender: FDA-Public Use
  Company Number: CN-MLMSERVICE-20240201-4805875-1

PATIENT
  Age: 68 Year
  Sex: Female

DRUGS (8)
  1. PACLITAXEL [Suspect]
     Active Substance: PACLITAXEL
     Indication: Squamous cell carcinoma
     Dosage: 175 MG/M2 Q3W (EVERY 3 WEEKS), RECIVED 10 CYCLES
     Dates: start: 202110, end: 202207
  2. PACLITAXEL [Suspect]
     Active Substance: PACLITAXEL
     Indication: Cervix carcinoma stage IV
  3. BEVACIZUMAB [Concomitant]
     Active Substance: BEVACIZUMAB
     Indication: Cervix carcinoma stage IV
     Dosage: 15 MG/KG Q3W (EVERY 3 WEEKS),RECEIVED 10 CYCLES
     Dates: start: 202110, end: 202207
  4. BEVACIZUMAB [Concomitant]
     Active Substance: BEVACIZUMAB
     Indication: Squamous cell carcinoma
  5. CADONILIMAB [Concomitant]
     Active Substance: CADONILIMAB
     Indication: Squamous cell carcinoma
     Dosage: 10 MG/KG Q3W (EVERY THREE WEEK), RECEIVED 10 CYCLES
     Dates: start: 202110, end: 202207
  6. CADONILIMAB [Concomitant]
     Active Substance: CADONILIMAB
     Indication: Cervix carcinoma stage IV
  7. CARBOPLATIN [Concomitant]
     Active Substance: CARBOPLATIN
     Indication: Cervix carcinoma stage IV
     Dosage: (AUC=5), Q3W (EVERY 3 WEEKS), RECEIVED 10 CYCLES
     Dates: start: 202110, end: 202207
  8. CARBOPLATIN [Concomitant]
     Active Substance: CARBOPLATIN
     Indication: Squamous cell carcinoma

REACTIONS (1)
  - Off label use [Unknown]
